FAERS Safety Report 6983684-3 (Version None)
Quarter: 2010Q3

REPORT INFORMATION
  Report Type: 
  Country: None (occurrence: None)
  Receive Date: 20100914
  Receipt Date: 20020314
  Transmission Date: 20110219
  Serious: Yes (Death, Other)
  Sender: FDA-Public Use
  Company Number: US-WYE-H07130808

PATIENT
  Age: 39 Year
  Sex: Female

DRUGS (11)
  1. IBUPROFEN [Suspect]
     Indication: ILL-DEFINED DISORDER
     Dosage: UNKNOWN
     Route: 065
  2. ZYRTEC [Suspect]
     Indication: ILL-DEFINED DISORDER
     Dosage: UNKNOWN
     Route: 065
  3. LIPITOR [Suspect]
     Indication: ILL-DEFINED DISORDER
     Dosage: UNKNOWN
     Route: 065
  4. OXCARBAZEPINE [Suspect]
     Indication: ILL-DEFINED DISORDER
     Dosage: UNKNOWN
     Route: 065
     Dates: start: 20010101
  5. LANSOPRAZOLE [Concomitant]
  6. LORAZEPAM [Concomitant]
  7. METOPROLOL TARTRATE [Concomitant]
  8. ZOLPIDEM [Concomitant]
  9. METHYLPHENIDATE [Concomitant]
  10. GEODON [Suspect]
     Indication: ILL-DEFINED DISORDER
     Dosage: UNKNOWN
     Route: 065
  11. ESCITALOPRAM [Suspect]
     Indication: ILL-DEFINED DISORDER
     Dosage: UNKNOWN
     Route: 065

REACTIONS (3)
  - ARRHYTHMIA [None]
  - CIRCULATORY COLLAPSE [None]
  - KNEE OPERATION [None]
